FAERS Safety Report 26206970 (Version 1)
Quarter: 2025Q4

REPORT INFORMATION
  Report Type: Spontaneous
  Country: AR (occurrence: AR)
  Receive Date: 20251229
  Receipt Date: 20251229
  Transmission Date: 20260118
  Serious: Yes (Other)
  Sender: GLAXOSMITHKLINE
  Company Number: AR-GSK-AR2025GSK166294

PATIENT
  Age: 38 Year
  Sex: Female

DRUGS (1)
  1. LAMOTRIGINE [Suspect]
     Active Substance: LAMOTRIGINE
     Indication: Bipolar disorder
     Dosage: LOW DOSE

REACTIONS (4)
  - Encephalitis [Recovered/Resolved]
  - Toxic skin eruption [Recovered/Resolved]
  - Hepatotoxicity [Recovered/Resolved]
  - Drug hypersensitivity [Recovered/Resolved]
